FAERS Safety Report 12354380 (Version 1)
Quarter: 2016Q2

REPORT INFORMATION
  Report Type: Spontaneous
  Country: DE (occurrence: DE)
  Receive Date: 20160511
  Receipt Date: 20160511
  Transmission Date: 20160815
  Serious: Yes (Other)
  Sender: FDA-Public Use
  Company Number: DE-FRESENIUS KABI-FK201602593

PATIENT
  Age: 53 Year
  Sex: Female

DRUGS (3)
  1. CLINDAMYCIN [Concomitant]
     Active Substance: CLINDAMYCIN\CLINDAMYCIN PHOSPHATE
     Indication: ESCHERICHIA SEPSIS
     Route: 065
  2. GENTAMICIN (MANUFACTURER UNKNOWN) [Suspect]
     Active Substance: GENTAMICIN
     Indication: ESCHERICHIA SEPSIS
     Route: 042
  3. DICLOFENAC [Suspect]
     Active Substance: DICLOFENAC
     Indication: PAIN MANAGEMENT
     Route: 048

REACTIONS (2)
  - Potentiating drug interaction [Recovered/Resolved]
  - Acute kidney injury [Recovered/Resolved]
